FAERS Safety Report 8679164 (Version 3)
Quarter: 2012Q4

REPORT INFORMATION
  Report Type: 
  Country: US (occurrence: US)
  Receive Date: 20120724
  Receipt Date: 20121016
  Transmission Date: 20130627
  Serious: No
  Sender: FDA-Public Use
  Company Number: US-PFIZER INC-2012175500

PATIENT
  Age: 56 Year
  Sex: Male
  Weight: 83.9 kg

DRUGS (20)
  1. ARTHROTEC [Suspect]
     Indication: TENDONITIS
     Dosage: 75/200 mg, as needed (1-2 daily)
     Route: 048
     Dates: start: 2009
  2. ARTHROTEC [Suspect]
     Indication: NECK INJURY
     Dosage: UNK
  3. ARTHROTEC [Suspect]
     Indication: NECK PAIN
  4. NORVASC [Suspect]
     Indication: HYPERTENSION
     Dosage: 10 mg, daily
     Dates: start: 2009
  5. DIOVAN (VALSARTAN) [Concomitant]
     Indication: HYPERTENSION
     Dosage: 320 mg, daily
     Dates: start: 2009
  6. TYLENOL [Concomitant]
     Indication: PAIN IN EXTREMITY
     Dosage: UNK, as needed
  7. TYLENOL [Concomitant]
     Indication: BACK PAIN
  8. TYLENOL [Concomitant]
     Indication: MUSCULOSKELETAL PAIN
  9. TYLENOL [Concomitant]
     Indication: HEADACHE
  10. GEMFIBROZIL [Concomitant]
     Indication: BLOOD CHOLESTEROL ABNORMAL
     Dosage: 600 mg, 2x/day
  11. LISINOPRIL [Concomitant]
     Indication: HYPERTENSION
     Dosage: UNK
     Dates: start: 2009
  12. ASA [Concomitant]
     Dosage: UNK
  13. LOVASTATIN [Concomitant]
     Dosage: UNK
  14. HCTZ [Concomitant]
     Dosage: UNK
  15. TERAZOSIN [Concomitant]
  16. ZANTAC [Concomitant]
  17. GLUCOSAMINE [Concomitant]
  18. VICODIN [Concomitant]
  19. AMITRIPTYLINE [Concomitant]
  20. GABAPENTIN [Concomitant]
     Dosage: UNK

REACTIONS (5)
  - Hypoaesthesia [Recovered/Resolved]
  - Hypoaesthesia [Not Recovered/Not Resolved]
  - Malaise [Not Recovered/Not Resolved]
  - Local swelling [Not Recovered/Not Resolved]
  - Nerve compression [Unknown]
